FAERS Safety Report 11071444 (Version 4)
Quarter: 2019Q3

REPORT INFORMATION
  Report Type: Spontaneous
  Country: US (occurrence: US)
  Receive Date: 20150428
  Receipt Date: 20190821
  Transmission Date: 20191004
  Serious: No
  Sender: FDA-Public Use
  Company Number: US-PFIZER INC-2015142160

PATIENT
  Age: 64 Year
  Sex: Female
  Weight: 124.72 kg

DRUGS (3)
  1. REMERON [Suspect]
     Active Substance: MIRTAZAPINE
     Dosage: UNK
  2. ALPRAZOLAM. [Suspect]
     Active Substance: ALPRAZOLAM
     Dosage: UNK
  3. ROZEREM [Suspect]
     Active Substance: RAMELTEON
     Dosage: UNK

REACTIONS (2)
  - Hallucination [Unknown]
  - Drug hypersensitivity [Unknown]
